FAERS Safety Report 6300301-6 (Version None)
Quarter: 2009Q3

REPORT INFORMATION
  Report Type: 
  Country: None (occurrence: None)
  Receive Date: 20090804
  Receipt Date: 20090717
  Transmission Date: 20100115
  Serious: Yes (Hospitalization)
  Sender: FDA-Public Use
  Company Number: 20090312

PATIENT
  Age: 24 Year
  Sex: Female

DRUGS (1)
  1. VENOFER [Suspect]
     Indication: POSTPARTUM HAEMORRHAGE
     Dosage: 200 MG INTRAVENOUS DRIP
     Route: 041
     Dates: start: 20090706, end: 20090706

REACTIONS (1)
  - THROMBOPHLEBITIS SUPERFICIAL [None]
